FAERS Safety Report 14671854 (Version 1)
Quarter: 2018Q1

REPORT INFORMATION
  Report Type: Spontaneous
  Country: DE (occurrence: DE)
  Receive Date: 20180323
  Receipt Date: 20180323
  Transmission Date: 20180509
  Serious: Yes (Death, Other)
  Sender: FDA-Public Use
  Company Number: DE-SUN PHARMACEUTICAL INDUSTRIES LTD-2018RR-167864

PATIENT
  Age: 80 Year
  Sex: Female
  Weight: 56 kg

DRUGS (19)
  1. DOCETAXEL. [Suspect]
     Active Substance: DOCETAXEL
     Indication: HER-2 POSITIVE BREAST CANCER
     Dosage: UNK ()
     Route: 065
  2. HERCEPTIN [Suspect]
     Active Substance: TRASTUZUMAB
     Indication: HER-2 POSITIVE BREAST CANCER
     Dosage: 1008 MG/KG
     Route: 042
     Dates: start: 20180103
  3. PACLITAXEL. [Suspect]
     Active Substance: PACLITAXEL
     Indication: HER-2 POSITIVE BREAST CANCER
     Dosage: 80-134.4 MG/M2 ()
     Route: 042
     Dates: start: 20170505, end: 20170810
  4. BISOHEXAL [Concomitant]
     Active Substance: BISOPROLOL FUMARATE
     Indication: HYPERTENSION
     Dosage: 2.5 MG TO 10 MG, UNK
     Route: 048
  5. XARELTO [Concomitant]
     Active Substance: RIVAROXABAN
     Indication: ATRIAL FIBRILLATION
     Dosage: 20 MG, UNK
     Route: 048
     Dates: start: 20150630
  6. LETROZOLE. [Suspect]
     Active Substance: LETROZOLE
     Indication: HER-2 POSITIVE BREAST CANCER
     Dosage: 2.5 MG, DAILY
     Route: 048
     Dates: start: 20170916
  7. MIRTAZAPIN [Suspect]
     Active Substance: MIRTAZAPINE
     Indication: DEPRESSION
     Dosage: 30 MG
     Route: 048
     Dates: start: 20050630
  8. HERCEPTIN [Suspect]
     Active Substance: TRASTUZUMAB
     Dosage: 120-600 MG MOST RECENT DOSE ON 17/AUG/2017
     Route: 042
     Dates: start: 20170505
  9. XGEVA [Suspect]
     Active Substance: DENOSUMAB
     Indication: HER-2 POSITIVE BREAST CANCER
     Dosage: 480 MG, UNK
     Route: 058
     Dates: start: 20170421
  10. BISOHEXAL [Concomitant]
     Active Substance: BISOPROLOL FUMARATE
     Dosage: 10 G, UNK
     Route: 048
     Dates: start: 19980630
  11. XGEVA [Suspect]
     Active Substance: DENOSUMAB
     Indication: HER-2 POSITIVE BREAST CANCER
     Dosage: 120 MG
     Route: 058
     Dates: start: 20170421
  12. LETROZOLE. [Suspect]
     Active Substance: LETROZOLE
     Dosage: 2.5 MG
     Route: 048
     Dates: start: 20170916
  13. BISOHEXAL [Concomitant]
     Active Substance: BISOPROLOL FUMARATE
     Dosage: 2.5 MG, UNK
     Route: 048
  14. HERCEPTIN [Suspect]
     Active Substance: TRASTUZUMAB
     Dosage: 336 MG/KG
     Route: 042
     Dates: start: 20180103
  15. TORASEMID [Suspect]
     Active Substance: TORSEMIDE
     Indication: PRODUCT USED FOR UNKNOWN INDICATION
     Dosage: UNK ()
     Route: 065
  16. TRASTUZUMAB. [Suspect]
     Active Substance: TRASTUZUMAB
     Indication: HER-2 POSITIVE BREAST CANCER
     Dosage: 120-600 MG MOST RECENT DOSE ON 17/AUG/2017 ()
     Route: 042
     Dates: start: 20170505
  17. PERTUZUMAB SOLUTION FOR INFUSION [Suspect]
     Active Substance: PERTUZUMAB
     Indication: HER-2 POSITIVE BREAST CANCER
     Dosage: MOST RECENT DOSE ON 17/AUG/2017
     Route: 042
     Dates: start: 20170505
  18. L-THYROXIN [Suspect]
     Active Substance: LEVOTHYROXINE SODIUM
     Indication: HYPOTHYROIDISM
     Dosage: 75 UG
     Route: 048
     Dates: start: 20060630
  19. DOXEPIN [Concomitant]
     Active Substance: DOXEPIN
     Indication: DEPRESSION
     Dosage: 25 MG
     Route: 048
     Dates: start: 20050630

REACTIONS (10)
  - Ill-defined disorder [Recovered/Resolved]
  - Dysaesthesia [Recovered/Resolved]
  - Fatigue [Recovered/Resolved]
  - Mastectomy [Fatal]
  - Asthenia [Fatal]
  - Left ventricular dysfunction [Not Recovered/Not Resolved]
  - Metastases to bone [Unknown]
  - Cystitis [Recovered/Resolved]
  - Metastases to liver [Fatal]
  - Nausea [Recovered/Resolved]

NARRATIVE: CASE EVENT DATE: 20170421
